APPROVED DRUG PRODUCT: SOTALOL HYDROCHLORIDE
Active Ingredient: SOTALOL HYDROCHLORIDE
Strength: 120MG
Dosage Form/Route: TABLET;ORAL
Application: A075238 | Product #002
Applicant: WATSON LABORATORIES INC
Approved: Jul 13, 2000 | RLD: No | RS: No | Type: DISCN